FAERS Safety Report 24571795 (Version 4)
Quarter: 2025Q4

REPORT INFORMATION
  Report Type: Report from Study
  Country: CA (occurrence: None)
  Receive Date: 20241101
  Receipt Date: 20251119
  Transmission Date: 20260117
  Serious: No
  Sender: UCB
  Company Number: CA-UCBSA-2024055958

PATIENT

DRUGS (2)
  1. CERTOLIZUMAB PEGOL [Suspect]
     Active Substance: CERTOLIZUMAB PEGOL
     Indication: Rheumatoid arthritis
     Dosage: 400 MILLIGRAM, EV 2 WEEKS(QOW)X3
  2. CERTOLIZUMAB PEGOL [Suspect]
     Active Substance: CERTOLIZUMAB PEGOL
     Dosage: 400 MILLIGRAM, EV 4 WEEKS

REACTIONS (4)
  - Health assessment questionnaire score increased [Not Recovered/Not Resolved]
  - C-reactive protein increased [Recovering/Resolving]
  - Red blood cell sedimentation rate increased [Not Recovered/Not Resolved]
  - Back pain [Not Recovered/Not Resolved]
